FAERS Safety Report 6945165-2 (Version None)
Quarter: 2010Q3

REPORT INFORMATION
  Report Type: 
  Country: None (occurrence: None)
  Receive Date: 20100827
  Receipt Date: 20100818
  Transmission Date: 20110219
  Serious: Yes (Hospitalization)
  Sender: FDA-Public Use
  Company Number: BR-SANOFI-AVENTIS-2010SA049691

PATIENT
  Sex: Female

DRUGS (7)
  1. ALLEGRA D 24 HOUR [Suspect]
     Indication: RHINITIS
     Route: 048
     Dates: start: 20100501
  2. ALLEGRA D 24 HOUR [Suspect]
     Route: 048
     Dates: start: 20100817
  3. BETAMETHASONE DIPROPIONATE/BETAMETHASONE SODIUM PHOSPHATE [Concomitant]
     Indication: RHINITIS
     Dates: start: 20100501
  4. CYPROTERONE ACETATE/ETHINYLESTRADIOL [Concomitant]
     Indication: CONTRACEPTION
     Route: 048
  5. FENERGAN [Concomitant]
     Route: 030
  6. ACETAMINOPHEN [Concomitant]
  7. POLARAMINE [Concomitant]
     Indication: RHINITIS

REACTIONS (1)
  - LEUKOCYTOCLASTIC VASCULITIS [None]
